FAERS Safety Report 12123177 (Version 1)
Quarter: 2016Q1

REPORT INFORMATION
  Report Type: Spontaneous
  Country: US (occurrence: US)
  Receive Date: 20160227
  Receipt Date: 20160227
  Transmission Date: 20160526
  Serious: Yes (Hospitalization)
  Sender: FDA-Public Use
  Company Number: US-ZYDUS-010333

PATIENT
  Age: 20 Year
  Sex: Male
  Weight: 70 kg

DRUGS (3)
  1. OXYCODONE [Suspect]
     Active Substance: OXYCODONE
     Indication: BREAKTHROUGH PAIN
     Dosage: EVERY FOUR HOURS AS NEEDED
     Route: 048
  2. MORPHINE [Suspect]
     Active Substance: MORPHINE
     Indication: BREAKTHROUGH PAIN
     Route: 048
  3. GABAPENTIN. [Concomitant]
     Active Substance: GABAPENTIN
     Indication: BREAKTHROUGH PAIN
     Dosage: TID
     Route: 048

REACTIONS (2)
  - Pain [Unknown]
  - Hyperaesthesia [Unknown]
